FAERS Safety Report 8522581-9 (Version None)
Quarter: 2012Q3

REPORT INFORMATION
  Report Type: 
  Country: None (occurrence: None)
  Receive Date: 20120719
  Receipt Date: 20120622
  Transmission Date: 20120928
  Serious: Yes (Hospitalization)
  Sender: FDA-Public Use
  Company Number: FR-B.I. PHARMACEUTICALS,INC./RIDGEFIELD-2012-FF-00819FF

PATIENT
  Age: 78 Year
  Sex: Male

DRUGS (9)
  1. INDAPAMIDE [Concomitant]
  2. FLUTICASONE PROPIONATE/SALMETEROL [Concomitant]
  3. RABEPRAZOLE SODIUM [Concomitant]
  4. DESLORATADINE [Concomitant]
  5. PERMIXON [Concomitant]
  6. PRADAXA [Suspect]
     Indication: ATRIAL FIBRILLATION
     Dosage: 220 MG
     Route: 048
  7. DIGOXIN [Concomitant]
  8. SPIRIVA [Concomitant]
  9. CORDARONE [Concomitant]

REACTIONS (4)
  - PYREXIA [None]
  - PRURITUS [None]
  - RASH [None]
  - INFLAMMATION [None]
